FAERS Safety Report 4607926-4 (Version None)
Quarter: 2005Q2

REPORT INFORMATION
  Report Type: 
  Country: None (occurrence: None)
  Receive Date: 20050303
  Receipt Date: 20041209
  Transmission Date: 20051028
  Serious: No
  Sender: FDA-Public Use
  Company Number: 205852

PATIENT
  Age: 29 Year
  Sex: Female

DRUGS (8)
  1. XOLAIR [Suspect]
     Indication: ASTHMA
     Dosage: 375 MG, Q2W; INTRAVENOUS
     Dates: start: 20031120, end: 20031202
  2. XOLAIR [Suspect]
     Indication: ASTHMA
     Dosage: 375 MG, Q2W; INTRAVENOUS
     Dates: end: 20041028
  3. ZYRTEC [Concomitant]
  4. FLONASE [Concomitant]
  5. PATANOL [Concomitant]
  6. ALBUTEROL (ALBUTEROL, ALBUTEROL SULFATE) [Concomitant]
  7. ADVAIR (SALMETEROL XINAFOATE, FLUTICASONE PROPIONATE) [Concomitant]
  8. BENADRYL [Concomitant]

REACTIONS (1)
  - DRUG EXPOSURE DURING PREGNANCY [None]
